FAERS Safety Report 10213055 (Version 1)
Quarter: 2014Q2

REPORT INFORMATION
  Report Type: Spontaneous
  Country: US (occurrence: US)
  Receive Date: 20140603
  Receipt Date: 20140603
  Transmission Date: 20141212
  Serious: Yes (Death, Hospitalization, Other)
  Sender: FDA-Public Use
  Company Number: US-ROCHE-1412227

PATIENT
  Age: 75 Year
  Sex: Female

DRUGS (1)
  1. CATHFLO ACTIVASE [Suspect]
     Indication: THROMBOSIS IN DEVICE
     Route: 065
     Dates: start: 20101022, end: 20101022

REACTIONS (5)
  - Hypertension [Fatal]
  - Arteriosclerosis [Fatal]
  - Haemorrhage [Fatal]
  - Pharyngeal oedema [Unknown]
  - Coma [Unknown]
